FAERS Safety Report 7465309-6 (Version None)
Quarter: 2011Q2

REPORT INFORMATION
  Report Type: 
  Country: None (occurrence: None)
  Receive Date: 20110509
  Receipt Date: 20101002
  Transmission Date: 20111010
  Serious: No
  Sender: FDA-Public Use
  Company Number: US-SANOFI-AVENTIS-2010SA062074

PATIENT
  Age: 78 Year
  Sex: Male

DRUGS (2)
  1. APIDRA [Suspect]
     Indication: TYPE 2 DIABETES MELLITUS
     Dosage: TOOK 10-15 UNITS THREE TIMES A DAY.
     Route: 065
  2. LANTUS [Suspect]
     Indication: TYPE 2 DIABETES MELLITUS

REACTIONS (2)
  - FEELING ABNORMAL [None]
  - BLOOD GLUCOSE INCREASED [None]
